FAERS Safety Report 14525921 (Version 2)
Quarter: 2018Q3

REPORT INFORMATION
  Report Type: Spontaneous
  Country: TR (occurrence: TR)
  Receive Date: 20180213
  Receipt Date: 20180709
  Transmission Date: 20181010
  Serious: Yes (Hospitalization, Other)
  Sender: FDA-Public Use
  Company Number: TR-PFIZER INC-2018008938

PATIENT
  Age: 16 Year
  Sex: Male

DRUGS (1)
  1. METHYLPREDNISOLONE SODIUM SUCCINATE. [Suspect]
     Active Substance: METHYLPREDNISOLONE SODIUM SUCCINATE
     Indication: LIMBIC ENCEPHALITIS
     Dosage: PULSE METHYLPREDNISOLONE (FOR 5 DAYS)

REACTIONS (2)
  - Hyperglycaemia [Recovering/Resolving]
  - Type 1 diabetes mellitus [Recovering/Resolving]
